FAERS Safety Report 7774227-5 (Version None)
Quarter: 2011Q3

REPORT INFORMATION
  Report Type: 
  Country: None (occurrence: None)
  Receive Date: 20110923
  Receipt Date: 20110915
  Transmission Date: 20111222
  Serious: Yes (Other)
  Sender: FDA-Public Use
  Company Number: JP-ASTELLAS-2011JP006608

PATIENT
  Age: 62 Year
  Sex: Male

DRUGS (2)
  1. PREDNISOLONE [Suspect]
     Indication: MYASTHENIA GRAVIS
     Dosage: 5 MG, QOD
     Route: 065
  2. PROGRAF [Suspect]
     Indication: MYASTHENIA GRAVIS
     Dosage: 3 MG, UNKNOWN/D
     Route: 048

REACTIONS (2)
  - BLOOD GLUCOSE INCREASED [None]
  - NEPHROTIC SYNDROME [None]
